FAERS Safety Report 25403480 (Version 1)
Quarter: 2025Q2

REPORT INFORMATION
  Report Type: Report from Study
  Country: US (occurrence: US)
  Receive Date: 20250605
  Receipt Date: 20250605
  Transmission Date: 20250716
  Serious: Yes (Other)
  Sender: ABBVIE
  Company Number: US-ABBVIE-6311239

PATIENT
  Sex: Male

DRUGS (1)
  1. HUMIRA [Suspect]
     Active Substance: ADALIMUMAB
     Indication: Product used for unknown indication
     Route: 058
     Dates: end: 2024

REACTIONS (9)
  - Skin necrosis [Not Recovered/Not Resolved]
  - Spinal disorder [Unknown]
  - Head discomfort [Unknown]
  - Condition aggravated [Unknown]
  - Scab [Not Recovered/Not Resolved]
  - Dry skin [Unknown]
  - Skin exfoliation [Not Recovered/Not Resolved]
  - Bone pain [Unknown]
  - Wound complication [Unknown]
